FAERS Safety Report 4267054-7 (Version None)
Quarter: 2004Q1

REPORT INFORMATION
  Report Type: 
  Country: None (occurrence: None)
  Receive Date: 20040107
  Receipt Date: 20040102
  Transmission Date: 20041129
  Serious: Yes (Hospitalization)
  Sender: FDA-Public Use
  Company Number: FR-JNJFOC-20040100033

PATIENT
  Age: 44 Year
  Sex: Female
  Weight: 63 kg

DRUGS (2)
  1. REMICADE [Suspect]
     Indication: CROHN'S DISEASE
     Dosage: INTRAVENOUS
     Route: 042
     Dates: start: 20010501, end: 20031104
  2. METHOTREXATE [Concomitant]

REACTIONS (3)
  - DRUG INEFFECTIVE [None]
  - OTITIS MEDIA [None]
  - PNEUMONIA LEGIONELLA [None]
